FAERS Safety Report 18147701 (Version 1)
Quarter: 2020Q3

REPORT INFORMATION
  Report Type: Spontaneous
  Country: CA (occurrence: CA)
  Receive Date: 20200813
  Receipt Date: 20200813
  Transmission Date: 20201103
  Serious: Yes (Hospitalization)
  Sender: FDA-Public Use
  Company Number: CA-TEVA-2020-CA-1812829

PATIENT
  Age: 76 Year
  Sex: Female

DRUGS (11)
  1. BISOPROLOL [Concomitant]
     Active Substance: BISOPROLOL
  2. MICARDIS [Concomitant]
     Active Substance: TELMISARTAN
  3. ROSUVASTATIN. [Concomitant]
     Active Substance: ROSUVASTATIN
  4. ASA [Concomitant]
     Active Substance: ASPIRIN
  5. VITAMINS [Concomitant]
     Active Substance: VITAMINS
  6. JARDIANCE [Concomitant]
     Active Substance: EMPAGLIFLOZIN
  7. SERTRALINE [Concomitant]
     Active Substance: SERTRALINE HYDROCHLORIDE
  8. GLICLAZIDE [Concomitant]
     Active Substance: GLICLAZIDE
  9. VITAMIN D [Concomitant]
     Active Substance: VITAMIN D NOS
  10. METFORMIN [Concomitant]
     Active Substance: METFORMIN HYDROCHLORIDE
  11. PIOGLITAZONE. [Suspect]
     Active Substance: PIOGLITAZONE

REACTIONS (3)
  - Bladder cancer [Unknown]
  - Haematuria [Unknown]
  - Haemoglobin decreased [Unknown]
